FAERS Safety Report 11861313 (Version 1)
Quarter: 2015Q4

REPORT INFORMATION
  Report Type: Spontaneous
  Country: US (occurrence: US)
  Receive Date: 20151222
  Receipt Date: 20151222
  Transmission Date: 20160305
  Serious: Yes (Hospitalization)
  Sender: FDA-Public Use
  Company Number: US-ASTRAZENECA-2015SF26812

PATIENT
  Age: 36 Year
  Sex: Female

DRUGS (14)
  1. PRILOSEC OTC [Suspect]
     Active Substance: OMEPRAZOLE MAGNESIUM
     Indication: DUODENAL ULCER
     Route: 048
     Dates: start: 20151212
  2. PRILOSEC [Suspect]
     Active Substance: OMEPRAZOLE MAGNESIUM
     Indication: DUODENAL ULCER
     Route: 048
     Dates: start: 1996, end: 2013
  3. ALLEGERA D [Concomitant]
     Indication: HYPERSENSITIVITY
     Route: 048
     Dates: start: 1976
  4. COMPAZINE [Concomitant]
     Active Substance: PROCHLORPERAZINE MALEATE
     Route: 048
     Dates: start: 1980
  5. PRILOSEC [Suspect]
     Active Substance: OMEPRAZOLE MAGNESIUM
     Indication: DUODENAL ULCER
     Dosage: GENERIC
     Route: 048
     Dates: start: 20151209, end: 20151211
  6. ZYRTEC [Concomitant]
     Active Substance: CETIRIZINE HYDROCHLORIDE
     Indication: HYPERSENSITIVITY
     Route: 048
     Dates: start: 1976
  7. PRILOSEC [Suspect]
     Active Substance: OMEPRAZOLE MAGNESIUM
     Indication: DUODENAL ULCER
     Route: 048
     Dates: end: 20151208
  8. FOLIC ACID. [Concomitant]
     Active Substance: FOLIC ACID
     Indication: ULCER
     Route: 048
     Dates: start: 2010
  9. VITAMIN D [Concomitant]
     Active Substance: CHOLECALCIFEROL
     Route: 048
     Dates: start: 2010
  10. TYLENOL [Concomitant]
     Active Substance: ACETAMINOPHEN
     Route: 048
  11. PREDNISONE. [Concomitant]
     Active Substance: PREDNISONE
     Indication: ARTHRITIS
     Dosage: (AS REQUIRED) 15 MG TITRATED DOWN TO 5 MG
     Route: 048
     Dates: start: 1980
  12. LIDODERM [Concomitant]
     Active Substance: LIDOCAINE
     Indication: PAIN
     Dosage: (AS REQUIRED) 5 %
     Route: 061
     Dates: start: 2000
  13. FLEXERIL [Concomitant]
     Active Substance: CYCLOBENZAPRINE HYDROCHLORIDE
     Indication: ARTHRITIS
     Route: 048
     Dates: start: 2010
  14. ARTHROTEC [Concomitant]
     Active Substance: DICLOFENAC SODIUM\MISOPROSTOL
     Indication: ARTHROPATHY
     Route: 048

REACTIONS (8)
  - Breast cancer female [Unknown]
  - Nausea [Recovered/Resolved]
  - Psoriatic arthropathy [Unknown]
  - Diarrhoea [Recovered/Resolved]
  - Vomiting [Recovered/Resolved]
  - Adverse event [Unknown]
  - Meningioma [Unknown]
  - Off label use [Unknown]

NARRATIVE: CASE EVENT DATE: 1988
